FAERS Safety Report 13419080 (Version 1)
Quarter: 2017Q2

REPORT INFORMATION
  Report Type: Report from Study
  Country: BR (occurrence: BR)
  Receive Date: 20170407
  Receipt Date: 20170407
  Transmission Date: 20170830
  Serious: Yes (Other)
  Sender: FDA-Public Use
  Company Number: BR-BIOGEN-2017BI00382112

PATIENT
  Sex: Female

DRUGS (1)
  1. AVONEX [Suspect]
     Active Substance: INTERFERON BETA-1A
     Indication: MULTIPLE SCLEROSIS
     Route: 030
     Dates: start: 20160104

REACTIONS (7)
  - Abasia [Unknown]
  - Limb mass [Unknown]
  - Neck mass [Unknown]
  - Loss of control of legs [Unknown]
  - Pain in extremity [Unknown]
  - Pyrexia [Unknown]
  - Pain [Unknown]
